FAERS Safety Report 13149058 (Version 1)
Quarter: 2017Q1

REPORT INFORMATION
  Report Type: Spontaneous
  Country: CH (occurrence: PT)
  Receive Date: 20170125
  Receipt Date: 20170125
  Transmission Date: 20170428
  Serious: Yes (Other)
  Sender: FDA-Public Use
  Company Number: CH-LPDUSPRD-20170024

PATIENT
  Age: 85 Year
  Sex: Male

DRUGS (1)
  1. VENOFER [Suspect]
     Active Substance: IRON SUCROSE
     Dosage: UNSPECIFIED DOSE
     Route: 042
     Dates: start: 20151117, end: 20151124

REACTIONS (3)
  - Dyspnoea [Unknown]
  - Face oedema [Unknown]
  - Pruritus [Unknown]

NARRATIVE: CASE EVENT DATE: 201511
